FAERS Safety Report 5832321-X (Version None)
Quarter: 2008Q3

REPORT INFORMATION
  Report Type: 
  Country: None (occurrence: None)
  Receive Date: 20080804
  Receipt Date: 20080728
  Transmission Date: 20090109
  Serious: Yes (Other)
  Sender: FDA-Public Use
  Company Number: B0527222A

PATIENT
  Age: 33 Year
  Sex: Female

DRUGS (7)
  1. PAXIL [Suspect]
     Indication: DRUG USE FOR UNKNOWN INDICATION
     Dosage: 10MG PER DAY
     Route: 048
     Dates: start: 20080606, end: 20080618
  2. PAXIL [Suspect]
     Dosage: 10MG TWICE PER DAY
     Route: 048
     Dates: start: 20080619, end: 20080619
  3. UNSPECIFIED DRUG [Suspect]
     Indication: DRUG USE FOR UNKNOWN INDICATION
     Dosage: .4MG TWICE PER DAY
     Route: 048
  4. CHINESE MEDICINE [Suspect]
     Indication: DRUG USE FOR UNKNOWN INDICATION
     Route: 048
  5. LENDORMIN [Suspect]
     Indication: DRUG USE FOR UNKNOWN INDICATION
     Route: 048
  6. RONFLEMAN [Concomitant]
     Dosage: .25MG PER DAY
     Route: 048
  7. FLUVOXAMINE MALEATE [Concomitant]
     Dates: start: 20080620, end: 20080724

REACTIONS (2)
  - AGGRESSION [None]
  - MEDICATION ERROR [None]
